FAERS Safety Report 18437674 (Version 1)
Quarter: 2020Q4

REPORT INFORMATION
  Report Type: Report from Study
  Country: US (occurrence: US)
  Receive Date: 20201028
  Receipt Date: 20201028
  Transmission Date: 20210114
  Serious: Yes (Hospitalization, Other)
  Sender: FDA-Public Use
  Company Number: US-BAUSCH-BL-2020-031198

PATIENT
  Age: 49 Year
  Sex: Male

DRUGS (1)
  1. XIFAXAN [Suspect]
     Active Substance: RIFAXIMIN
     Indication: PRODUCT USED FOR UNKNOWN INDICATION
     Dosage: STARTED 3-4 YEARS AGO PRIOR TO THE REPORT?RAN OUT PROBABLY 3-4 WEEKS AGO PRIOR TO THE REPORT
     Route: 065
     Dates: end: 2020

REACTIONS (7)
  - Renal disorder [Unknown]
  - Liver disorder [Unknown]
  - Hypotension [Unknown]
  - Internal haemorrhage [Unknown]
  - Oxygen saturation decreased [Unknown]
  - Therapy interrupted [Unknown]
  - Lung disorder [Unknown]

NARRATIVE: CASE EVENT DATE: 2020
